FAERS Safety Report 10992999 (Version 1)
Quarter: 2015Q2

REPORT INFORMATION
  Report Type: Other
  Country: GB (occurrence: GB)
  Receive Date: 20150406
  Receipt Date: 20150406
  Transmission Date: 20150821
  Serious: Yes (Other)
  Sender: FDA-Public Use
  Company Number: GB-MYLANLABS-2015M1009991

PATIENT

DRUGS (12)
  1. TERBINAFINE [Concomitant]
     Active Substance: TERBINAFINE
     Dosage: 1 DF, QD
     Dates: start: 20150225, end: 20150311
  2. CLARITHROMYCIN. [Suspect]
     Active Substance: CLARITHROMYCIN
     Dosage: 1 DF, UNK (TAKE ONE EVERY 12 HRS)
     Dates: start: 20150304
  3. DOXYCYCLINE. [Concomitant]
     Active Substance: DOXYCYCLINE
     Dosage: 1 DF, QD (TWO NOW THEN ONE DAILY)
     Dates: start: 20150305, end: 20150312
  4. METOPROLOL TARTRATE. [Concomitant]
     Active Substance: METOPROLOL TARTRATE
     Dosage: 1 DF, BID
     Dates: start: 20141205
  5. DUTASTERIDE. [Concomitant]
     Active Substance: DUTASTERIDE
     Dosage: 1 DF, QD
     Dates: start: 20141205
  6. WARFARIN SODIUM. [Concomitant]
     Active Substance: WARFARIN SODIUM
     Dosage: 1 DF, UNK (AS DIRECTED)
     Dates: start: 20141205
  7. ENOXAPARIN [Concomitant]
     Active Substance: ENOXAPARIN
     Dosage: 1 DF, QD (FROM DAY 1 - 3)
     Dates: start: 20150304, end: 20150307
  8. ENOXAPARIN [Concomitant]
     Active Substance: ENOXAPARIN
     Dosage: 0.7 ML, UNK (USE 0.7MLS ON DAY 4.)
  9. OCTENISAN [Concomitant]
     Dosage: UNK (USE AS DIRECTED)
     Dates: start: 20150304, end: 20150311
  10. ISOKET [Concomitant]
     Active Substance: ISOSORBIDE DINITRATE
     Dosage: 1 DF, BID
     Dates: start: 20141205
  11. TAMSULOSIN HYDROCHLORIDE. [Concomitant]
     Active Substance: TAMSULOSIN HYDROCHLORIDE
     Dosage: 1 DF, QD
     Dates: start: 20141205
  12. SIMVASTATIN. [Concomitant]
     Active Substance: SIMVASTATIN
     Dosage: 1 DF, QD
     Dates: start: 20141205

REACTIONS (2)
  - Malaise [Recovered/Resolved]
  - Feeling abnormal [Recovered/Resolved]

NARRATIVE: CASE EVENT DATE: 20150316
